FAERS Safety Report 14510860 (Version 6)
Quarter: 2020Q4

REPORT INFORMATION
  Report Type: Report from Study
  Country: CA (occurrence: CA)
  Receive Date: 20180209
  Receipt Date: 20201120
  Transmission Date: 20210113
  Serious: Yes (Other)
  Sender: FDA-Public Use
  Company Number: CA-TAKEDA-2018TUS002973

PATIENT
  Age: 34 Year
  Sex: Male

DRUGS (6)
  1. VEDOLIZUMAB [Suspect]
     Active Substance: VEDOLIZUMAB
     Indication: CROHN^S DISEASE
     Dosage: 300 MILLIGRAM
     Route: 042
     Dates: start: 20171027
  2. VEDOLIZUMAB [Suspect]
     Active Substance: VEDOLIZUMAB
     Dosage: 300 MILLIGRAM, Q4WEEKS
     Route: 042
  3. ALLOPURINOL. [Concomitant]
     Active Substance: ALLOPURINOL
     Dosage: UNK
  4. VEDOLIZUMAB [Suspect]
     Active Substance: VEDOLIZUMAB
     Dosage: 300 MILLIGRAM, Q4WEEKS
     Route: 042
     Dates: start: 20181207
  5. CIPRALEX [Suspect]
     Active Substance: ESCITALOPRAM OXALATE
     Indication: PRODUCT USED FOR UNKNOWN INDICATION
     Dosage: UNK
     Route: 065
  6. VEDOLIZUMAB [Suspect]
     Active Substance: VEDOLIZUMAB
     Dosage: 300 MILLIGRAM
     Route: 042

REACTIONS (13)
  - Crohn^s disease [Not Recovered/Not Resolved]
  - Fatigue [Unknown]
  - Adverse drug reaction [Not Recovered/Not Resolved]
  - Headache [Unknown]
  - Insomnia [Unknown]
  - Male orgasmic disorder [Unknown]
  - Rectal haemorrhage [Unknown]
  - Hypoaesthesia [Unknown]
  - Loss of consciousness [Unknown]
  - Malaise [Unknown]
  - Abdominal discomfort [Unknown]
  - Hyperhidrosis [Unknown]
  - Off label use [Unknown]

NARRATIVE: CASE EVENT DATE: 20180130
